FAERS Safety Report 7429384-7 (Version None)
Quarter: 2011Q2

REPORT INFORMATION
  Report Type: 
  Country: None (occurrence: None)
  Receive Date: 20110421
  Receipt Date: 20110414
  Transmission Date: 20111010
  Serious: Yes (Hospitalization, Other)
  Sender: FDA-Public Use
  Company Number: FR-PFIZER INC-2011081785

PATIENT
  Age: 50 Year
  Sex: Female

DRUGS (7)
  1. TROSPIUM CHLORIDE [Suspect]
     Dosage: 40 MG, 2X/DAY
     Route: 048
     Dates: start: 20110120, end: 20110127
  2. LEXOMIL [Suspect]
     Dosage: 2 DF, 1X/DAY
     Route: 048
     Dates: start: 20110120, end: 20110127
  3. NISIS [Suspect]
     Dosage: 320 MG, DAILY
     Route: 048
     Dates: start: 20110120, end: 20110127
  4. NOCTAMID [Suspect]
     Dosage: 2 MG, 1X/DAY
     Route: 048
     Dates: start: 20110120, end: 20110127
  5. LYRICA [Suspect]
     Dosage: 200 MG, 3X/DAY
     Route: 048
     Dates: start: 20110120, end: 20110127
  6. IXEL [Suspect]
     Dosage: 50 MG, 4X/DAY
     Route: 048
     Dates: start: 20110120, end: 20110127
  7. LIPANTHYL [Suspect]
     Dosage: 290 MG, DAILY
     Route: 048
     Dates: start: 20110120, end: 20110127

REACTIONS (7)
  - INFLAMMATION [None]
  - PYREXIA [None]
  - ARTHRALGIA [None]
  - RHABDOMYOLYSIS [None]
  - HYPOTENSION [None]
  - RENAL FAILURE ACUTE [None]
  - SOMNOLENCE [None]
